FAERS Safety Report 7288608-X (Version None)
Quarter: 2011Q1

REPORT INFORMATION
  Report Type: 
  Country: None (occurrence: None)
  Receive Date: 20110208
  Receipt Date: 20110208
  Transmission Date: 20110831
  Serious: No
  Sender: FDA-Public Use
  Company Number: None

PATIENT
  Sex: Male
  Weight: 83.4619 kg

DRUGS (1)
  1. ENOXAPARIN SODIUM [Suspect]
     Indication: PULMONARY THROMBOSIS
     Dosage: 1 SYRINGE QD SQ
     Dates: start: 20101230, end: 20110129

REACTIONS (5)
  - DEVICE DIFFICULT TO USE [None]
  - NEEDLE ISSUE [None]
  - INJECTION SITE PAIN [None]
  - WRONG TECHNIQUE IN DRUG USAGE PROCESS [None]
  - PRODUCT SUBSTITUTION ISSUE [None]
